FAERS Safety Report 8907001 (Version 2)
Quarter: 2013Q1

REPORT INFORMATION
  Report Type: Spontaneous
  Country: US (occurrence: US)
  Receive Date: 20121113
  Receipt Date: 20130131
  Transmission Date: 20140127
  Serious: Yes (Hospitalization)
  Sender: FDA-Public Use
  Company Number: US-GILEAD-2012-0064525

PATIENT
  Sex: Male

DRUGS (6)
  1. LETAIRIS [Suspect]
     Indication: PULMONARY ARTERIAL HYPERTENSION
     Dosage: 10 MG, QD
     Route: 048
     Dates: start: 20120927
  2. LETAIRIS [Suspect]
     Dosage: 5 MG, UNK
     Route: 048
  3. ALLOPURINOL [Concomitant]
  4. TAMSULOSIN [Concomitant]
  5. OMEPRAZOLE [Concomitant]
  6. NORCO [Concomitant]

REACTIONS (2)
  - Hypoxia [Unknown]
  - Local swelling [Unknown]
